FAERS Safety Report 9916108 (Version 1)
Quarter: 2014Q1

REPORT INFORMATION
  Report Type: Spontaneous
  Country: US (occurrence: None)
  Receive Date: 20140219
  Receipt Date: 20140219
  Transmission Date: 20141002
  Serious: No
  Sender: FDA-Public Use
  Company Number: None

PATIENT
  Age: 19 Year
  Sex: Female
  Weight: 53.52 kg

DRUGS (1)
  1. CEFADROXIL [Suspect]
     Indication: OROPHARYNGEAL PAIN
     Route: 048

REACTIONS (1)
  - Urticaria [None]
